FAERS Safety Report 21556806 (Version 1)
Quarter: 2022Q4

REPORT INFORMATION
  Report Type: Spontaneous
  Country: US (occurrence: None)
  Receive Date: 20221104
  Receipt Date: 20221104
  Transmission Date: 20230113
  Serious: Yes (Life-Threatening, Hospitalization, Disabling, Congenital Anomaly)
  Sender: FDA-Public Use
  Company Number: None

PATIENT
  Age: 0 Year
  Sex: Female

DRUGS (4)
  1. PROGESTERONE [Suspect]
     Active Substance: PROGESTERONE
     Indication: Product prescribing error
     Dosage: OTHER QUANTITY : 2 ML;?OTHER FREQUENCY : WEEKLY INJECTIONS;?
     Route: 030
     Dates: start: 20141226, end: 20150313
  2. CORTEF [Concomitant]
     Active Substance: HYDROCORTISONE
  3. FLUDROCORTISONE [Concomitant]
     Active Substance: FLUDROCORTISONE
  4. SYNTHROID [Concomitant]
     Active Substance: LEVOTHYROXINE SODIUM

REACTIONS (13)
  - Product prescribing error [None]
  - Exposure during pregnancy [None]
  - Wrong product administered [None]
  - Neonatal disorder [None]
  - Hirsutism [None]
  - Epiphyses premature fusion [None]
  - Vaginal disorder [None]
  - Lipohypertrophy [None]
  - Hypoglycaemia neonatal [None]
  - Fatigue [None]
  - Adrenal insufficiency [None]
  - Immune system disorder [None]
  - Nervous system disorder [None]

NARRATIVE: CASE EVENT DATE: 20150318
